FAERS Safety Report 17202055 (Version 1)
Quarter: 2019Q4

REPORT INFORMATION
  Report Type: Spontaneous
  Country: US (occurrence: US)
  Receive Date: 20191226
  Receipt Date: 20191226
  Transmission Date: 20200122
  Serious: No
  Sender: FDA-Public Use
  Company Number: US-MYLANLABS-2019M1121361

PATIENT
  Sex: Female

DRUGS (1)
  1. PREDNISONE TABLETS USP [Suspect]
     Active Substance: PREDNISONE
     Indication: MIGRAINE
     Dosage: 3 DOSAGE FORM, BID
     Route: 048
     Dates: start: 20191126

REACTIONS (1)
  - Drug ineffective for unapproved indication [Not Recovered/Not Resolved]
